FAERS Safety Report 26021674 (Version 1)
Quarter: 2025Q4

REPORT INFORMATION
  Report Type: Spontaneous
  Country: EU (occurrence: EU)
  Receive Date: 20251110
  Receipt Date: 20251110
  Transmission Date: 20260119
  Serious: Yes (Hospitalization, Congenital Anomaly)
  Sender: ABBVIE
  Company Number: EU-EMB-M202404384-1

PATIENT

DRUGS (3)
  1. ESCITALOPRAM [Suspect]
     Active Substance: ESCITALOPRAM OXALATE
     Indication: Maternal exposure timing unspecified
     Route: 064
  2. BUDESONIDE [Suspect]
     Active Substance: BUDESONIDE
     Indication: Maternal exposure timing unspecified
     Route: 064
  3. PERTUSSIS VACCINE [Concomitant]
     Active Substance: PERTUSSIS VACCINE
     Indication: Maternal exposure timing unspecified
     Route: 064

REACTIONS (2)
  - Talipes [Recovered/Resolved]
  - Foetal exposure during pregnancy [Unknown]
